FAERS Safety Report 12436660 (Version 1)
Quarter: 2016Q2

REPORT INFORMATION
  Report Type: Spontaneous
  Country: US (occurrence: None)
  Receive Date: 20160603
  Receipt Date: 20160603
  Transmission Date: 20160815
  Serious: Yes (Life-Threatening, Hospitalization, Disabling)
  Sender: FDA-Public Use
  Company Number: None

PATIENT
  Age: 62 Year
  Sex: Female
  Weight: 81.65 kg

DRUGS (14)
  1. PANTOPRAZOLE [Concomitant]
     Active Substance: PANTOPRAZOLE SODIUM
  2. PROBIOTIC [Concomitant]
     Active Substance: PROBIOTICS NOS
  3. TYLENOL [Concomitant]
     Active Substance: ACETAMINOPHEN
  4. GLUCOSAMINE [Concomitant]
     Active Substance: GLUCOSAMINE
  5. LEXAPRO [Concomitant]
     Active Substance: ESCITALOPRAM OXALATE
  6. MAGNESIUM [Concomitant]
     Active Substance: MAGNESIUM
  7. TRULICITY [Suspect]
     Active Substance: DULAGLUTIDE
     Indication: DIABETES MELLITUS
     Dosage: WEEKLY STOMACH INJECTION
     Dates: start: 20151115, end: 20160403
  8. AVAPRO [Concomitant]
     Active Substance: IRBESARTAN
  9. FLONASE [Concomitant]
     Active Substance: FLUTICASONE PROPIONATE
  10. BUPROPION XL [Concomitant]
     Active Substance: BUPROPION
  11. LIPITOR [Concomitant]
     Active Substance: ATORVASTATIN CALCIUM
  12. MULTI VITAMIN [Concomitant]
     Active Substance: VITAMINS
  13. VITAMIN D [Concomitant]
     Active Substance: CHOLECALCIFEROL
  14. LOVAZA [Concomitant]
     Active Substance: OMEGA-3-ACID ETHYL ESTERS

REACTIONS (16)
  - Dysphagia [None]
  - Dehydration [None]
  - Blood pressure decreased [None]
  - Acute kidney injury [None]
  - Depression [None]
  - Fatigue [None]
  - Nerve compression [None]
  - Blood sodium decreased [None]
  - Vomiting [None]
  - Tremor [None]
  - Swelling face [None]
  - Diarrhoea [None]
  - Gastritis [None]
  - Cystitis [None]
  - Blood magnesium decreased [None]
  - Lethargy [None]

NARRATIVE: CASE EVENT DATE: 20160329
